FAERS Safety Report 17535884 (Version 2)
Quarter: 2020Q2

REPORT INFORMATION
  Report Type: Report from Study
  Country: US (occurrence: US)
  Receive Date: 20200313
  Receipt Date: 20200501
  Transmission Date: 20200713
  Serious: Yes (Hospitalization, Other)
  Sender: FDA-Public Use
  Company Number: US-ROCHE-2543717

PATIENT
  Age: 76 Year
  Sex: Female

DRUGS (3)
  1. ESBRIET [Suspect]
     Active Substance: PIRFENIDONE
     Indication: IDIOPATHIC PULMONARY FIBROSIS
     Dosage: 1 PILL 3 TIMES DAILY
     Route: 048
  2. ESBRIET [Suspect]
     Active Substance: PIRFENIDONE
     Dosage: 2 PILLS 3 TIMES DAILY
     Route: 048
     Dates: start: 20200305
  3. ESBRIET [Suspect]
     Active Substance: PIRFENIDONE
     Dosage: 1 PILL 3 TIMES DAILY, ONGOING NO
     Route: 046

REACTIONS (10)
  - Gastric haemorrhage [Unknown]
  - Abdominal pain upper [Not Recovered/Not Resolved]
  - Pneumonia [Not Recovered/Not Resolved]
  - Nausea [Recovered/Resolved]
  - Gastric disorder [Not Recovered/Not Resolved]
  - Off label use [Unknown]
  - Influenza [Not Recovered/Not Resolved]
  - Inflammation [Recovering/Resolving]
  - Intentional product misuse [Unknown]
  - Large intestine polyp [Unknown]

NARRATIVE: CASE EVENT DATE: 20200305
